FAERS Safety Report 8161283-8 (Version None)
Quarter: 2012Q1

REPORT INFORMATION
  Report Type: 
  Country: None (occurrence: None)
  Receive Date: 20120222
  Receipt Date: 20120222
  Transmission Date: 20120608
  Serious: Yes (Hospitalization)
  Sender: FDA-Public Use
  Company Number: None

PATIENT
  Sex: Female
  Weight: 63.95 kg

DRUGS (14)
  1. TRAZODONE HCL [Concomitant]
  2. RANITIDINE [Concomitant]
  3. TAXOL [Suspect]
     Dosage: 384 MG
     Dates: end: 20120131
  4. BENADRYL [Concomitant]
  5. CALCIUM WITH VITAMIN D [Concomitant]
  6. LOVASTATIN [Concomitant]
  7. PLAVIX [Concomitant]
  8. CARBOPLATIN [Suspect]
     Dosage: 780 MG
     Dates: end: 20120131
  9. BENTYL [Concomitant]
  10. LISINOPRIL [Concomitant]
  11. MULTI-VITAMIN [Concomitant]
  12. SYNTHROID [Concomitant]
  13. ARICEPT [Concomitant]
  14. VENLAFAXINE [Concomitant]

REACTIONS (3)
  - SYNCOPE [None]
  - LOSS OF CONSCIOUSNESS [None]
  - DEHYDRATION [None]
